FAERS Safety Report 7685270-9 (Version None)
Quarter: 2011Q3

REPORT INFORMATION
  Report Type: 
  Country: None (occurrence: None)
  Receive Date: 20110816
  Receipt Date: 20110810
  Transmission Date: 20111222
  Serious: Yes (Other)
  Sender: FDA-Public Use
  Company Number: US-PFIZER INC-2011184235

PATIENT
  Sex: Female
  Weight: 56.7 kg

DRUGS (1)
  1. PREMARIN [Suspect]
     Indication: ATROPHIC VULVOVAGINITIS
     Dosage: UNK
     Route: 067
     Dates: start: 20101201, end: 20110806

REACTIONS (3)
  - URINARY TRACT INFECTION [None]
  - VULVOVAGINAL BURNING SENSATION [None]
  - VAGINAL INFECTION [None]
